FAERS Safety Report 5578936-8 (Version None)
Quarter: 2007Q4

REPORT INFORMATION
  Report Type: 
  Country: None (occurrence: None)
  Receive Date: 20071228
  Receipt Date: 20071219
  Transmission Date: 20080405
  Serious: Yes (Hospitalization)
  Sender: FDA-Public Use
  Company Number: 2007-04250

PATIENT
  Age: 64 Year
  Sex: Male
  Weight: 69.4 kg

DRUGS (10)
  1. VELCADE [Suspect]
     Indication: MULTIPLE MYELOMA
     Dosage: 2.34 MG, INTRAVENOUS
     Route: 042
     Dates: start: 20071129, end: 20071210
  2. DOXIL [Concomitant]
  3. KYTRIL [Concomitant]
  4. DECADRON (SERTRALINE HYDROCHLORIDE) [Concomitant]
  5. ZOLOFT [Concomitant]
  6. ZOFRAN [Concomitant]
  7. PHENERGAN [Concomitant]
  8. BACTRIM DS [Concomitant]
  9. FLEXERIL [Concomitant]
  10. ZOMETA [Concomitant]

REACTIONS (2)
  - ATRIAL FIBRILLATION [None]
  - PERICARDITIS [None]
